FAERS Safety Report 19502133 (Version 1)
Quarter: 2021Q3

REPORT INFORMATION
  Report Type: Spontaneous
  Country: GB (occurrence: GB)
  Receive Date: 20210707
  Receipt Date: 20210707
  Transmission Date: 20211014
  Serious: Yes (Death, Other)
  Sender: FDA-Public Use
  Company Number: GB-BIOVITRUM-2021GB6666

PATIENT

DRUGS (3)
  1. KINERET [Suspect]
     Active Substance: ANAKINRA
     Indication: THROMBOCYTOPENIA
  2. KINERET [Suspect]
     Active Substance: ANAKINRA
     Indication: IMMUNODEFICIENCY
  3. KINERET [Suspect]
     Active Substance: ANAKINRA
     Indication: PYREXIA

REACTIONS (2)
  - Multiple organ dysfunction syndrome [Fatal]
  - Off label use [Unknown]
